FAERS Safety Report 8244089-0 (Version None)
Quarter: 2012Q1

REPORT INFORMATION
  Report Type: 
  Country: None (occurrence: None)
  Receive Date: 20120329
  Receipt Date: 20120320
  Transmission Date: 20120608
  Serious: Yes (Hospitalization)
  Sender: FDA-Public Use
  Company Number: FR-BRISTOL-MYERS SQUIBB COMPANY-16469702

PATIENT
  Age: 82 Year
  Sex: Male

DRUGS (10)
  1. BISOPROLOL FUMARATE [Concomitant]
     Dosage: 1 DOSAGE FORM = 3.75 (UNITS NOT SPECIFIED)
  2. ASPIRIN [Suspect]
     Dosage: POWDER FOR ORAL SOLUTION IN DOSE-SACHET (ACETYLSALISYLATE LYSINE) 75 MG DAILY ORALLY
     Route: 048
  3. PRAVASTATIN SODIUM [Concomitant]
     Dosage: 1 DOSAGE FORM = 20 (UNITS NOT SPECIFIED)
  4. PLAVIX [Suspect]
     Dosage: FILM-COATED TABLET (CLOPIDOGREL) 1 FILM-COATED TABLET DAILY ORALLY
     Route: 048
  5. LASIX [Concomitant]
     Dosage: 1 DOSAGE FORM = 40 (UNITS NOT SPECIFIED)
  6. LEXOMIL [Concomitant]
  7. COUMADIN [Suspect]
     Dosage: 1 DF = 2.5 DOSAGE FORMS (ONE IN THE MORNING, ONE AT THE NOON AND HALF TABLET IN THE EVENING)
     Route: 048
  8. AMLODIPINE [Concomitant]
     Dosage: 1 DOSAGE FORM = 10 (UNITS NOT SPECIFIED)
  9. PERINDOPRIL ERBUMINE [Concomitant]
     Dosage: 1 DOSAGE FORM = 5 (UNITS NOT SPECIFIED)
  10. BRONCHODUAL [Concomitant]

REACTIONS (2)
  - MELAENA [None]
  - ANAEMIA [None]
